FAERS Safety Report 10344138 (Version 1)
Quarter: 2014Q3

REPORT INFORMATION
  Report Type: Spontaneous
  Country: US (occurrence: None)
  Receive Date: 20140725
  Receipt Date: 20140725
  Transmission Date: 20150326
  Serious: No
  Sender: FDA-Public Use
  Company Number: None

PATIENT
  Age: 35 Year
  Sex: Female
  Weight: 63.05 kg

DRUGS (19)
  1. CARBAMAZEPINE 400MG X 2 DAILY APOTEX [Suspect]
     Active Substance: CARBAMAZEPINE
     Indication: TACHYPHRENIA
     Dosage: 400 MGS ?2X DAILY ?2-200MG PILLS 2X DAILY ?TWICE DAILY ?BY MOUTH??THERAPY DATE?MAY 6 2104 ?STILL TAKING IT
     Route: 048
  2. TEGRELOL [Concomitant]
  3. SIMVASTATIN. [Concomitant]
     Active Substance: SIMVASTATIN
  4. OXYCODONE [Concomitant]
     Active Substance: OXYCODONE
  5. VITAMIN C [Concomitant]
     Active Substance: ASCORBIC ACID
  6. D [Concomitant]
  7. MULTIVITAMIN [Concomitant]
     Active Substance: VITAMINS
  8. GABAPENTIN. [Concomitant]
     Active Substance: GABAPENTIN
  9. BUSPAR [Concomitant]
     Active Substance: BUSPIRONE HYDROCHLORIDE
  10. OXYCODONE [Concomitant]
     Active Substance: OXYCODONE
  11. KRILL OIL [Concomitant]
     Active Substance: DIETARY SUPPLEMENT
  12. AMBIEN [Concomitant]
     Active Substance: ZOLPIDEM TARTRATE
  13. FENOFIBRATE. [Concomitant]
     Active Substance: FENOFIBRATE
  14. CLARITIN [Concomitant]
     Active Substance: LORATADINE
  15. NYSTATIN. [Concomitant]
     Active Substance: NYSTATIN
  16. COPPER [Concomitant]
     Active Substance: COPPER
  17. MAGNESIUM [Concomitant]
     Active Substance: MAGNESIUM
  18. INVEGA [Concomitant]
     Active Substance: PALIPERIDONE
  19. E [Concomitant]

REACTIONS (3)
  - Fungal infection [None]
  - Vulvovaginal dryness [None]
  - Bacterial infection [None]

NARRATIVE: CASE EVENT DATE: 20140516
